FAERS Safety Report 21017776 (Version 1)
Quarter: 2022Q2

REPORT INFORMATION
  Report Type: Spontaneous
  Country: US (occurrence: None)
  Receive Date: 20220628
  Receipt Date: 20220628
  Transmission Date: 20220720
  Serious: Yes (unspecified)
  Sender: FDA-Public Use
  Company Number: None

PATIENT
  Age: 97 Year
  Sex: Female
  Weight: 47.63 kg

DRUGS (13)
  1. HYDROCHLOROTHIAZIDE\VALSARTAN [Suspect]
     Active Substance: HYDROCHLOROTHIAZIDE\VALSARTAN
     Indication: Hypertension
  2. LISINOPRIL [Concomitant]
     Active Substance: LISINOPRIL
  3. LEVOTHYROXINE [Concomitant]
     Active Substance: LEVOTHYROXINE
  4. COENZYME Q10 [Concomitant]
     Active Substance: DIETARY SUPPLEMENT\UBIDECARENONE
  5. VECTOEMEGA 3 FROM SALMON [Concomitant]
  6. ZEAXANTHIN [Concomitant]
     Active Substance: ZEAXANTHIN
  7. LUTEIN [Concomitant]
     Active Substance: LUTEIN
  8. VITAMIN C [Concomitant]
     Active Substance: ASCORBIC ACID
  9. PROBIOTICS NOS [Concomitant]
     Active Substance: PROBIOTICS NOS
  10. OSTEO BIFLEX TRIPLE STRENGTH + VITAMIN D [Concomitant]
  11. WOMEN^S ONE MULTIVITAMINS [Concomitant]
  12. CO-ENZYME B COMPLEX [Concomitant]
  13. ALPHA LIPOIC ACID [Concomitant]
     Active Substance: .ALPHA.-LIPOIC ACID

REACTIONS (1)
  - Blindness [None]
